FAERS Safety Report 9901856 (Version 1)
Quarter: 2014Q1

REPORT INFORMATION
  Report Type: Spontaneous
  Country: US (occurrence: US)
  Receive Date: 20140217
  Receipt Date: 20140217
  Transmission Date: 20141002
  Serious: Yes (Hospitalization)
  Sender: FDA-Public Use
  Company Number: US-VIIV HEALTHCARE LIMITED-A1061201A

PATIENT
  Age: 63 Year
  Sex: Male
  Weight: 73.5 kg

DRUGS (27)
  1. TRIZIVIR [Suspect]
     Indication: HIV INFECTION
     Route: 065
     Dates: end: 20130924
  2. ATRIPLA [Suspect]
     Indication: HIV INFECTION
     Route: 048
     Dates: start: 20130924, end: 20131114
  3. PHENYTOIN [Suspect]
     Indication: CONVULSION
     Dosage: 100MG THREE TIMES PER DAY
     Route: 048
     Dates: start: 20131008, end: 20131114
  4. NEVIRAPINE [Suspect]
     Indication: HIV INFECTION
     Route: 065
     Dates: end: 20130924
  5. ALBUTEROL [Concomitant]
  6. ATORVASTATIN [Concomitant]
  7. CETIRIZINE [Concomitant]
  8. VITAMIN D [Concomitant]
  9. FUROSEMIDE [Concomitant]
  10. GABAPENTIN [Concomitant]
  11. TRIAMTERENE + HYDROCHLOROTHIAZIDE [Concomitant]
  12. VICODIN [Concomitant]
  13. INSULIN GLARGINE [Concomitant]
  14. INSULIN ASPART [Concomitant]
  15. ISOSORBIDE MONONITRATE [Concomitant]
  16. LAMOTRIGINE [Concomitant]
  17. LISINOPRIL [Concomitant]
  18. LORAZEPAM [Concomitant]
  19. MAGNESIUM OXIDE [Concomitant]
  20. METOPROLOL TARTRATE [Concomitant]
  21. NAPROXEN [Concomitant]
  22. NITROGLYCERINE [Concomitant]
  23. OMEPRAZOLE [Concomitant]
  24. OXYBUTYNIN [Concomitant]
  25. PRAZOSIN [Concomitant]
  26. SERTRALINE [Concomitant]
  27. ZOLPIDEM [Concomitant]

REACTIONS (7)
  - Convulsion [Recovered/Resolved]
  - Confusional state [Recovered/Resolved]
  - Tremor [Recovered/Resolved]
  - Dysarthria [Recovered/Resolved]
  - Gait disturbance [Recovered/Resolved]
  - Asthenia [Recovered/Resolved]
  - Lethargy [Recovered/Resolved]
